FAERS Safety Report 15728855 (Version 4)
Quarter: 2019Q1

REPORT INFORMATION
  Report Type: Report from Study
  Country: None (occurrence: CH)
  Receive Date: 20181217
  Receipt Date: 20190319
  Transmission Date: 20190417
  Serious: Yes (Hospitalization)
  Sender: FDA-Public Use
  Company Number: CH-ABBVIE-18S-151-2587798-00

PATIENT
  Sex: Female

DRUGS (4)
  1. DUODOPA [Suspect]
     Active Substance: CARBIDOPA\LEVODOPA
     Route: 050
     Dates: start: 2018
  2. DUODOPA [Suspect]
     Active Substance: CARBIDOPA\LEVODOPA
     Indication: PARKINSON^S DISEASE
     Route: 050
     Dates: start: 20160225, end: 20180803
  3. DUODOPA [Suspect]
     Active Substance: CARBIDOPA\LEVODOPA
     Dosage: MD 6ML, CR DAY 3.8ML/H, CR NIGHT 1ML/H, ED 2ML
     Route: 050
     Dates: start: 20180803, end: 20180907
  4. DUODOPA [Suspect]
     Active Substance: CARBIDOPA\LEVODOPA
     Dosage: 24H MD 6ML, CD DAY 3.7ML/H, CD NIGHT 1ML/H, ED 2ML
     Route: 050
     Dates: start: 20180907, end: 2018

REACTIONS (3)
  - Stoma site pain [Recovered/Resolved]
  - Stoma site inflammation [Recovered/Resolved]
  - Stoma site hypergranulation [Recovering/Resolving]
